FAERS Safety Report 16852096 (Version 1)
Quarter: 2019Q3

REPORT INFORMATION
  Report Type: Spontaneous
  Country: US (occurrence: US)
  Receive Date: 20190925
  Receipt Date: 20190925
  Transmission Date: 20191005
  Serious: No
  Sender: FDA-Public Use
  Company Number: US-ASTRAZENECA-2019SF27186

PATIENT
  Age: 3543 Week
  Sex: Female
  Weight: 90.7 kg

DRUGS (7)
  1. BREO ELLIPTA [Concomitant]
     Active Substance: FLUTICASONE FUROATE\VILANTEROL TRIFENATATE
     Indication: ASTHMA
     Dosage: 100 MCG/25 MCG, AT NIGHT
     Route: 055
     Dates: start: 201903
  2. FASENRA [Suspect]
     Active Substance: BENRALIZUMAB
     Indication: ASTHMA
     Dosage: ONCE MONTHLY
     Route: 058
     Dates: start: 20190802
  3. PREDNISONE. [Concomitant]
     Active Substance: PREDNISONE
     Indication: ASTHMA
     Route: 048
     Dates: start: 201903
  4. MONTELUKAST [Concomitant]
     Active Substance: MONTELUKAST SODIUM
     Indication: ASTHMA
     Dates: start: 2019
  5. FASENRA [Suspect]
     Active Substance: BENRALIZUMAB
     Indication: ASTHMA
     Dosage: ONCE MONTHLY
     Route: 058
     Dates: start: 20190702
  6. SYMBICORT [Suspect]
     Active Substance: BUDESONIDE\FORMOTEROL FUMARATE DIHYDRATE
     Indication: INHALATION THERAPY
     Dosage: 160/4.5 UG AS NEEDED UNKNOWN
     Route: 055
     Dates: start: 201905
  7. SPIRIVA RESPIMAT [Concomitant]
     Active Substance: TIOTROPIUM BROMIDE
     Indication: ASTHMA
     Dosage: 1.25UG/INHAL AT NIGHT
     Route: 055
     Dates: start: 201903

REACTIONS (5)
  - Dyspnoea [Unknown]
  - Wheezing [Unknown]
  - Respiratory tract congestion [Unknown]
  - Product dose omission [Unknown]
  - Intentional product misuse [Unknown]

NARRATIVE: CASE EVENT DATE: 201908
